FAERS Safety Report 12357576 (Version 3)
Quarter: 2016Q2

REPORT INFORMATION
  Report Type: Report from Study
  Country: US (occurrence: US)
  Receive Date: 20160512
  Receipt Date: 20160613
  Transmission Date: 20160815
  Serious: No
  Sender: FDA-Public Use
  Company Number: US-AMGEN-USASL2016057235

PATIENT
  Age: 67 Year
  Sex: Female

DRUGS (1)
  1. ENBREL [Suspect]
     Active Substance: ETANERCEPT
     Indication: PSORIASIS
     Dosage: 50 MG, 2 TIMES/WK
     Route: 065
     Dates: start: 20060101

REACTIONS (4)
  - Anxiety [Not Recovered/Not Resolved]
  - Mobility decreased [Recovering/Resolving]
  - Psoriasis [Recovering/Resolving]
  - Joint range of motion decreased [Recovering/Resolving]

NARRATIVE: CASE EVENT DATE: 20160512
